FAERS Safety Report 23064514 (Version 1)
Quarter: 2023Q4

REPORT INFORMATION
  Report Type: Spontaneous
  Country: US (occurrence: None)
  Receive Date: 20231013
  Receipt Date: 20231013
  Transmission Date: 20240110
  Serious: Yes (Life-Threatening, Hospitalization)
  Sender: FDA-Public Use
  Company Number: None

PATIENT
  Age: 36 Year
  Sex: Female

DRUGS (1)
  1. IRON SUCROSE [Suspect]
     Active Substance: IRON SUCROSE
     Dosage: FREQUENCY : ONCE;?
     Route: 042
     Dates: start: 20221121, end: 20221121

REACTIONS (11)
  - Hypersensitivity [None]
  - Blood pressure systolic decreased [None]
  - Dyspnoea [None]
  - Abdominal pain [None]
  - Muscle spasms [None]
  - Infusion related reaction [None]
  - Nausea [None]
  - Diarrhoea [None]
  - Back pain [None]
  - Limb discomfort [None]
  - Discomfort [None]

NARRATIVE: CASE EVENT DATE: 20221121
